FAERS Safety Report 9719132 (Version 1)
Quarter: 2013Q4

REPORT INFORMATION
  Report Type: Spontaneous
  Country: IT (occurrence: IT)
  Receive Date: 20131127
  Receipt Date: 20131127
  Transmission Date: 20140711
  Serious: Yes (Other)
  Sender: FDA-Public Use
  Company Number: PHHY2013IT136090

PATIENT
  Age: 59 Year
  Sex: Male

DRUGS (1)
  1. IRINOTECAN [Suspect]
     Indication: RECTOSIGMOID CANCER
     Dosage: 360 MG, CYCLIC
     Route: 042
     Dates: start: 20130305, end: 20130912

REACTIONS (2)
  - Joint stiffness [Recovered/Resolved]
  - Muscle tightness [Recovered/Resolved]
